FAERS Safety Report 13240506 (Version 2)
Quarter: 2017Q2

REPORT INFORMATION
  Report Type: Spontaneous
  Country: US (occurrence: US)
  Receive Date: 20170216
  Receipt Date: 20170530
  Transmission Date: 20170830
  Serious: Yes (Other)
  Sender: FDA-Public Use
  Company Number: US-UCBSA-2017003701

PATIENT
  Age: 49 Year
  Sex: Female

DRUGS (1)
  1. CIMZIA [Suspect]
     Active Substance: CERTOLIZUMAB PEGOL
     Indication: PSORIATIC ARTHROPATHY
     Dosage: 400 MG, MONTHLY (QM)
     Route: 058
     Dates: start: 20161006, end: 20170201

REACTIONS (5)
  - Hepatic enzyme increased [Recovering/Resolving]
  - Platelet count decreased [Unknown]
  - Hepatic cirrhosis [Unknown]
  - Hepatitis [Unknown]
  - Blood albumin decreased [Unknown]

NARRATIVE: CASE EVENT DATE: 20161220
